FAERS Safety Report 18668732 (Version 2)
Quarter: 2021Q3

REPORT INFORMATION
  Report Type: Spontaneous
  Country: US (occurrence: US)
  Receive Date: 20201228
  Receipt Date: 20210702
  Transmission Date: 20211014
  Serious: No
  Sender: FDA-Public Use
  Company Number: US-BAYER-2020-285269

PATIENT
  Age: 66 Year
  Sex: Male

DRUGS (9)
  1. WALGREENS FERROUS SULFATE [Concomitant]
  2. BABY ASPIRIN [Concomitant]
     Active Substance: ASPIRIN
  3. MAGNESIUM [Concomitant]
     Active Substance: MAGNESIUM
  4. VITAMIN D3 [Concomitant]
     Active Substance: CHOLECALCIFEROL
  5. PRAVASTATIN SODIUM. [Concomitant]
     Active Substance: PRAVASTATIN SODIUM
  6. TYLENOL [Concomitant]
     Active Substance: ACETAMINOPHEN
  7. ALEVE [Suspect]
     Active Substance: NAPROXEN SODIUM
     Indication: PAIN
     Dosage: 2 DF
     Route: 048
     Dates: start: 20201223
  8. FISH OIL [Concomitant]
     Active Substance: FISH OIL
  9. PIROXICAM. [Concomitant]
     Active Substance: PIROXICAM

REACTIONS (6)
  - Pruritus [Unknown]
  - Eczema [None]
  - Vomiting [Unknown]
  - Pruritus [Recovered/Resolved]
  - Rash [Unknown]
  - Vomiting [Recovered/Resolved]

NARRATIVE: CASE EVENT DATE: 20201223
